FAERS Safety Report 10149679 (Version 2)
Quarter: 2014Q2

REPORT INFORMATION
  Report Type: Report from Study
  Country: PH (occurrence: PH)
  Receive Date: 20140502
  Receipt Date: 20140502
  Transmission Date: 20141212
  Serious: Yes (Death, Hospitalization, Other)
  Sender: FDA-Public Use
  Company Number: PHHY2013PH110402

PATIENT
  Sex: Male

DRUGS (1)
  1. GLIVEC [Suspect]
     Indication: CHRONIC MYELOID LEUKAEMIA
     Dosage: 600 MG

REACTIONS (7)
  - Circulatory collapse [Fatal]
  - Bone disorder [Unknown]
  - Infection [Unknown]
  - Back pain [Unknown]
  - Pain in extremity [Unknown]
  - Thrombosis [Unknown]
  - Spinal pain [Unknown]
